FAERS Safety Report 23282843 (Version 1)
Quarter: 2023Q4

REPORT INFORMATION
  Report Type: Spontaneous
  Country: US (occurrence: None)
  Receive Date: 20231209
  Receipt Date: 20231209
  Transmission Date: 20240110
  Serious: Yes (Hospitalization)
  Sender: FDA-Public Use
  Company Number: None

PATIENT
  Sex: Male
  Weight: 65.3 kg

DRUGS (1)
  1. EVEROLIMUS [Suspect]
     Active Substance: EVEROLIMUS
     Dates: end: 20231130

REACTIONS (14)
  - Loss of personal independence in daily activities [None]
  - Encephalopathy [None]
  - Lethargy [None]
  - Depressed level of consciousness [None]
  - Pyrexia [None]
  - Therapy interrupted [None]
  - Cerebral ischaemia [None]
  - Pelvic abscess [None]
  - Arthritis bacterial [None]
  - Osteomyelitis [None]
  - Lymphoedema [None]
  - Cellulitis [None]
  - Myositis [None]
  - Colitis [None]

NARRATIVE: CASE EVENT DATE: 20231202
